FAERS Safety Report 13453656 (Version 1)
Quarter: 2017Q2

REPORT INFORMATION
  Report Type: Spontaneous
  Country: US (occurrence: US)
  Receive Date: 20170418
  Receipt Date: 20170418
  Transmission Date: 20170830
  Serious: No
  Sender: FDA-Public Use
  Company Number: US-ALLERGAN-1660784US

PATIENT
  Age: 49 Year
  Sex: Female
  Weight: 63.49 kg

DRUGS (4)
  1. JUVEDERM [Concomitant]
     Active Substance: HYALURONIC ACID
     Indication: SKIN WRINKLING
     Dosage: UNK
     Dates: start: 201602, end: 201602
  2. BOTOX COSMETIC [Concomitant]
     Active Substance: ONABOTULINUMTOXINA
     Indication: SKIN WRINKLING
     Dosage: UNK
     Dates: start: 201602, end: 201602
  3. JUVEDERM [Concomitant]
     Active Substance: HYALURONIC ACID
     Indication: SKIN WRINKLING
  4. LATISSE [Suspect]
     Active Substance: BIMATOPROST
     Indication: GROWTH OF EYELASHES
     Dosage: 2 GTT, QHS
     Route: 061
     Dates: start: 20160301, end: 20160308

REACTIONS (6)
  - Vision blurred [Recovering/Resolving]
  - Dry eye [Recovering/Resolving]
  - Foreign body sensation in eyes [Recovering/Resolving]
  - Corneal abrasion [Recovering/Resolving]
  - Lagophthalmos [Recovering/Resolving]
  - Eye pruritus [Recovering/Resolving]

NARRATIVE: CASE EVENT DATE: 20160301
